FAERS Safety Report 19775212 (Version 2)
Quarter: 2021Q4

REPORT INFORMATION
  Report Type: Report from Study
  Country: US (occurrence: US)
  Receive Date: 20210902
  Receipt Date: 20211014
  Transmission Date: 20220303
  Serious: Yes (Death)
  Sender: FDA-Public Use
  Company Number: US-ACADIA PHARMACEUTICALS INC.-ACA-2021-PIM-003090

PATIENT
  Sex: Male
  Weight: 72 kg

DRUGS (9)
  1. NUPLAZID [Suspect]
     Active Substance: PIMAVANSERIN TARTRATE
     Indication: Parkinson^s disease psychosis
     Dosage: 34 MILLIGRAM, QD
     Route: 048
     Dates: start: 20210310, end: 20210822
  2. NUPLAZID [Suspect]
     Active Substance: PIMAVANSERIN TARTRATE
     Indication: Hallucination
  3. NUPLAZID [Suspect]
     Active Substance: PIMAVANSERIN TARTRATE
     Indication: Delusion
  4. MIRTAZAPINE [Concomitant]
     Active Substance: MIRTAZAPINE
  5. QUETIAPINE [Concomitant]
     Active Substance: QUETIAPINE
  6. RASAGILINE [Concomitant]
     Active Substance: RASAGILINE
  7. RIVASTIGMINE [Concomitant]
     Active Substance: RIVASTIGMINE
  8. RYTARY [Concomitant]
     Active Substance: CARBIDOPA\LEVODOPA
  9. TAMSULOSIN [Concomitant]
     Active Substance: TAMSULOSIN

REACTIONS (2)
  - Parkinson^s disease [Fatal]
  - Dementia with Lewy bodies [Fatal]
